FAERS Safety Report 8919361 (Version 1)
Quarter: 2012Q4

REPORT INFORMATION
  Report Type: 
  Country: US (occurrence: US)
  Receive Date: 20121121
  Receipt Date: 20121121
  Transmission Date: 20130627
  Serious: No
  Sender: FDA-Public Use
  Company Number: US-PFIZER INC-2012288175

PATIENT
  Age: 73 Year
  Sex: Female
  Weight: 53.06 kg

DRUGS (3)
  1. ZYVOX [Suspect]
     Indication: INFECTION MRSA
     Dosage: 600 mg, 2x/day
     Dates: start: 20121022, end: 20121031
  2. VANCOMYCIN HCL [Suspect]
     Indication: INFECTION MRSA
     Dosage: UNK
  3. SOY EXTRACT [Suspect]
     Dosage: UNK
     Dates: end: 2012

REACTIONS (5)
  - Visual impairment [Recovering/Resolving]
  - Blood count abnormal [Unknown]
  - Renal disorder [Unknown]
  - Vomiting [Recovering/Resolving]
  - Headache [Recovering/Resolving]
